FAERS Safety Report 12317816 (Version 1)
Quarter: 2016Q2

REPORT INFORMATION
  Report Type: Spontaneous
  Country: SE (occurrence: SE)
  Receive Date: 20160429
  Receipt Date: 20160429
  Transmission Date: 20160815
  Serious: Yes (Other)
  Sender: FDA-Public Use
  Company Number: SE-PFIZER INC-2016218149

PATIENT
  Age: 16 Year
  Sex: Male

DRUGS (2)
  1. DOXAZOSIN [Suspect]
     Active Substance: DOXAZOSIN\DOXAZOSIN MESYLATE
     Indication: POST-TRAUMATIC STRESS DISORDER
     Dosage: 4 MG, 1X/DAY AT NIGHT
  2. PROPAVAN [Concomitant]
     Active Substance: PROPIOMAZINE

REACTIONS (6)
  - Depressed level of consciousness [Recovered/Resolved]
  - Alcohol poisoning [Recovered/Resolved]
  - Product use issue [Unknown]
  - Blood lactic acid increased [Recovered/Resolved]
  - Toxicity to various agents [Recovered/Resolved]
  - Blood pressure decreased [Recovered/Resolved]

NARRATIVE: CASE EVENT DATE: 20160319
